FAERS Safety Report 12740349 (Version 1)
Quarter: 2016Q3

REPORT INFORMATION
  Report Type: Spontaneous
  Country: US (occurrence: US)
  Receive Date: 20160913
  Receipt Date: 20160913
  Transmission Date: 20161109
  Serious: No
  Sender: FDA-Public Use
  Company Number: US-PFIZER INC-2016424488

PATIENT
  Age: 45 Year
  Sex: Male
  Weight: 59 kg

DRUGS (2)
  1. TYLENOL [Concomitant]
     Active Substance: ACETAMINOPHEN
     Indication: HEADACHE
     Dosage: 500 MG, UNK
     Route: 048
  2. SUTENT [Suspect]
     Active Substance: SUNITINIB MALATE
     Indication: NEOPLASM MALIGNANT
     Dosage: 350 MG, 1X/DAY
     Route: 048
     Dates: start: 20160817, end: 20160831

REACTIONS (11)
  - Malaise [Recovering/Resolving]
  - Yellow skin [Recovering/Resolving]
  - Diarrhoea [Recovering/Resolving]
  - Ageusia [Recovering/Resolving]
  - Gingival swelling [Recovering/Resolving]
  - Asthenia [Recovering/Resolving]
  - Decreased appetite [Recovering/Resolving]
  - Headache [Recovering/Resolving]
  - Nausea [Recovering/Resolving]
  - Ocular icterus [Recovering/Resolving]
  - Somnolence [Recovering/Resolving]
